FAERS Safety Report 5682218-3 (Version None)
Quarter: 2008Q1

REPORT INFORMATION
  Report Type: 
  Country: None (occurrence: None)
  Receive Date: 20080327
  Receipt Date: 20080320
  Transmission Date: 20080703
  Serious: Yes (Other)
  Sender: FDA-Public Use
  Company Number: PHNU2008DE01259

PATIENT
  Age: 78 Year
  Sex: Female
  Weight: 85 kg

DRUGS (5)
  1. RASILEZ [Suspect]
     Indication: HYPERTENSION
     Dosage: 150 MG/D
     Route: 048
     Dates: start: 20080306, end: 20080310
  2. ANGIOTENSIN II ANTAGONISTS [Concomitant]
  3. ACE INHIBITOR NOS [Concomitant]
  4. FUROSEMIDE [Concomitant]
     Dates: end: 20080306
  5. TOREM [Concomitant]
     Dates: start: 20080306, end: 20080310

REACTIONS (5)
  - FALL [None]
  - GAIT DISTURBANCE [None]
  - MOTOR DYSFUNCTION [None]
  - MUSCULAR WEAKNESS [None]
  - MYOCLONUS [None]
